FAERS Safety Report 7112327-3 (Version None)
Quarter: 2010Q4

REPORT INFORMATION
  Report Type: 
  Country: None (occurrence: None)
  Receive Date: 20101119
  Receipt Date: 20100722
  Transmission Date: 20110411
  Serious: No
  Sender: FDA-Public Use
  Company Number: A0871897A

PATIENT
  Age: 84 Year
  Sex: Male

DRUGS (11)
  1. AVODART [Suspect]
     Indication: BENIGN PROSTATIC HYPERPLASIA
     Dosage: 1CAPL PER DAY
     Route: 048
     Dates: start: 20100716
  2. FLOMAX [Concomitant]
  3. LOTREL [Concomitant]
  4. PLAVIX [Concomitant]
  5. ZETIA [Concomitant]
  6. TOPROL-XL [Concomitant]
  7. BENICAR [Concomitant]
  8. PROTONIX [Concomitant]
  9. PRAVACHOL [Concomitant]
  10. DARVOCET [Concomitant]
  11. WARFARIN SODIUM [Concomitant]

REACTIONS (3)
  - DIZZINESS [None]
  - FEELING HOT [None]
  - TENSION HEADACHE [None]
